FAERS Safety Report 6322691-0 (Version None)
Quarter: 2009Q3

REPORT INFORMATION
  Report Type: 
  Country: None (occurrence: None)
  Receive Date: 20090824
  Receipt Date: 20090615
  Transmission Date: 20100115
  Serious: No
  Sender: FDA-Public Use
  Company Number: US-ABBOTT-09P-163-0562185-00

PATIENT
  Sex: Female
  Weight: 81.266 kg

DRUGS (14)
  1. NIASPAN [Suspect]
     Indication: LOW DENSITY LIPOPROTEIN DECREASED
     Route: 048
     Dates: start: 20090301
  2. COUMADIN [Concomitant]
     Indication: ANTICOAGULANT THERAPY
     Dosage: MONDAY-WEDNESDAY-FRI
     Route: 048
  3. COUMADIN [Concomitant]
     Dosage: TUESDAY-THURSDAY-SAT-SUN
     Route: 048
  4. XALATAN [Concomitant]
     Indication: INTRAOCULAR PRESSURE TEST ABNORMAL
     Route: 047
  5. LASIX [Concomitant]
     Indication: CARDIAC FAILURE CONGESTIVE
     Route: 048
  6. COREG [Concomitant]
     Indication: CARDIAC DISORDER
     Dosage: 12.5 IN AM AND 19 MG AT DINNER
     Route: 048
  7. POTASSIUM CHLORIDE [Concomitant]
     Indication: ELECTROLYTE SUBSTITUTION THERAPY
  8. DIGOXIN [Concomitant]
     Indication: CARDIAC FAILURE CONGESTIVE
     Route: 048
  9. DIOVAN [Concomitant]
     Indication: HYPERTENSION
  10. MOTRIN PM [Concomitant]
     Indication: DRUG USE FOR UNKNOWN INDICATION
     Route: 048
  11. CALCIUM W/VITAMIN D [Concomitant]
     Indication: MEDICAL DIET
     Route: 048
  12. EYE CAPS [Concomitant]
     Indication: PROPHYLAXIS
     Route: 048
  13. EYE CAPS [Concomitant]
     Indication: EYE DISORDER
  14. METAMUCIL [Concomitant]
     Indication: CONSTIPATION
     Dosage: ONE DAILY AS DIRECTED
     Route: 048

REACTIONS (6)
  - CHILLS [None]
  - CONTUSION [None]
  - DRUG INEFFECTIVE [None]
  - FALL [None]
  - FLUSHING [None]
  - PARAESTHESIA [None]
